FAERS Safety Report 8590395-X (Version None)
Quarter: 2012Q3

REPORT INFORMATION
  Report Type: 
  Country: None (occurrence: None)
  Receive Date: 20120813
  Receipt Date: 20120802
  Transmission Date: 20120928
  Serious: Yes (Other)
  Sender: FDA-Public Use
  Company Number: CA-BAYER-2012-077884

PATIENT
  Age: 32 Year
  Sex: Female

DRUGS (1)
  1. MIRENA [Suspect]
     Indication: CONTRACEPTION
     Dosage: 20 MCG/24HR, CONT
     Route: 015
     Dates: start: 20120401

REACTIONS (5)
  - ABDOMINAL PAIN [None]
  - OVARIAN CYST [None]
  - RENAL CYST [None]
  - MENORRHAGIA [None]
  - BLOOD URINE PRESENT [None]
